FAERS Safety Report 9114162 (Version 2)
Quarter: 2013Q3

REPORT INFORMATION
  Report Type: Spontaneous
  Country: US (occurrence: US)
  Receive Date: 20130208
  Receipt Date: 20130812
  Transmission Date: 20140515
  Serious: Yes (Other)
  Sender: FDA-Public Use
  Company Number: US-009507513-1302USA000565

PATIENT
  Sex: Female

DRUGS (2)
  1. TICE BCG LIVE [Suspect]
     Indication: BLADDER CANCER
     Dosage: UNK
     Route: 066
     Dates: start: 20130118, end: 20130118
  2. TICE BCG LIVE [Suspect]
     Dosage: UNK
     Route: 066
     Dates: start: 20130125

REACTIONS (3)
  - Medical device complication [Unknown]
  - Underdose [Unknown]
  - Incorrect dose administered by device [Unknown]
